FAERS Safety Report 7529297-6 (Version None)
Quarter: 2011Q2

REPORT INFORMATION
  Report Type: 
  Country: None (occurrence: None)
  Receive Date: 20110531
  Receipt Date: 20110516
  Transmission Date: 20111010
  Serious: Yes (Other)
  Sender: FDA-Public Use
  Company Number: CRC-11-135

PATIENT
  Sex: Male

DRUGS (1)
  1. CARBIDOPA AND LEVODOPA [Suspect]
     Indication: PARKINSON'S DISEASE
     Dosage: ONE TAB. 5 X DAILY; ORAL
     Route: 048
     Dates: start: 20110101, end: 20110301

REACTIONS (7)
  - ANXIETY [None]
  - MOBILITY DECREASED [None]
  - NAUSEA [None]
  - QUALITY OF LIFE DECREASED [None]
  - DIZZINESS [None]
  - DEPRESSION [None]
  - HYPERTENSION [None]
